FAERS Safety Report 26066820 (Version 1)
Quarter: 2025Q4

REPORT INFORMATION
  Report Type: Spontaneous
  Country: BR (occurrence: BR)
  Receive Date: 20251119
  Receipt Date: 20251119
  Transmission Date: 20260118
  Serious: Yes (Hospitalization)
  Sender: NOVO NORDISK
  Company Number: BR-NOVOPROD-1565092

PATIENT
  Age: 28 Year
  Sex: Female
  Weight: 83 kg

DRUGS (1)
  1. SAXENDA [Suspect]
     Active Substance: LIRAGLUTIDE
     Indication: Obesity
     Dosage: 0.6 MG, QD
     Dates: start: 20251101, end: 20251109

REACTIONS (6)
  - Migraine [Recovering/Resolving]
  - Tinnitus [Unknown]
  - Nausea [Unknown]
  - Weight increased [Recovering/Resolving]
  - Illness [Unknown]
  - Drug ineffective [Unknown]

NARRATIVE: CASE EVENT DATE: 20251101
